FAERS Safety Report 5030591-1 (Version None)
Quarter: 2006Q2

REPORT INFORMATION
  Report Type: 
  Country: None (occurrence: None)
  Receive Date: 20060615
  Receipt Date: 20060602
  Transmission Date: 20061013
  Serious: Yes (Hospitalization, Other)
  Sender: FDA-Public Use
  Company Number: 2006057136

PATIENT
  Age: 46 Year
  Sex: Male
  Weight: 127.0072 kg

DRUGS (1)
  1. BEXTRA [Suspect]
     Indication: BACK DISORDER
     Dosage: 10 MG
     Dates: start: 20020712

REACTIONS (17)
  - ACUTE MYOCARDIAL INFARCTION [None]
  - ATELECTASIS [None]
  - CARDIAC DISORDER [None]
  - CARDIOMEGALY [None]
  - COLLAPSE OF LUNG [None]
  - CORONARY ARTERY DISEASE [None]
  - DILATATION VENTRICULAR [None]
  - DYSPEPSIA [None]
  - ELECTROCARDIOGRAM T WAVE ABNORMAL [None]
  - LIPIDS INCREASED [None]
  - LUNG DISORDER [None]
  - PERIARTHRITIS [None]
  - PLEURAL EFFUSION [None]
  - SHOULDER PAIN [None]
  - TREATMENT NONCOMPLIANCE [None]
  - VENTRICULAR DYSFUNCTION [None]
  - WHITE BLOOD CELL COUNT INCREASED [None]
